FAERS Safety Report 6674388-5 (Version None)
Quarter: 2010Q2

REPORT INFORMATION
  Report Type: 
  Country: None (occurrence: None)
  Receive Date: 20100409
  Receipt Date: 20100405
  Transmission Date: 20101027
  Serious: Yes (Other)
  Sender: FDA-Public Use
  Company Number: US-PFIZER INC-2010020837

PATIENT

DRUGS (2)
  1. CELEBREX [Suspect]
  2. ASACOL [Suspect]
     Dosage: 400 MG, UNK

REACTIONS (1)
  - NEPHROPATHY TOXIC [None]
